FAERS Safety Report 5016681-8 (Version None)
Quarter: 2006Q2

REPORT INFORMATION
  Report Type: 
  Country: None (occurrence: None)
  Receive Date: 20060602
  Receipt Date: 20060525
  Transmission Date: 20061013
  Serious: Yes (Hospitalization)
  Sender: FDA-Public Use
  Company Number: 2006UW10282

PATIENT
  Sex: Male

DRUGS (4)
  1. SEROQUEL [Suspect]
     Dosage: 450 MG QD AT NOON, 200 MG QHS
     Route: 048
  2. DEPAKOTE [Suspect]
  3. TRILEPTAL [Suspect]
  4. MEDICINALPRODUCT NOT SPECIFIED BY SENDER [Concomitant]

REACTIONS (1)
  - LOSS OF CONSCIOUSNESS [None]
